FAERS Safety Report 7592325-6 (Version None)
Quarter: 2011Q3

REPORT INFORMATION
  Report Type: 
  Country: None (occurrence: None)
  Receive Date: 20110706
  Receipt Date: 20110621
  Transmission Date: 20111222
  Serious: Yes (Hospitalization)
  Sender: FDA-Public Use
  Company Number: JP-JNJFOC-20110701216

PATIENT
  Age: 90 Year
  Sex: Female

DRUGS (2)
  1. LEVOFLOXACIN [Suspect]
     Indication: BRONCHITIS
     Route: 048
     Dates: start: 20110411, end: 20110415
  2. LEVOFLOXACIN [Suspect]
     Indication: TONSILLITIS
     Route: 048
     Dates: start: 20110411, end: 20110415

REACTIONS (2)
  - AGGRESSION [None]
  - DELIRIUM [None]
